FAERS Safety Report 16915173 (Version 1)
Quarter: 2019Q4

REPORT INFORMATION
  Report Type: Spontaneous
  Country: US (occurrence: US)
  Receive Date: 20191014
  Receipt Date: 20191014
  Transmission Date: 20200122
  Serious: Yes (Other)
  Sender: FDA-Public Use
  Company Number: US-BRAINTREE LABORATORIES-190559

PATIENT
  Age: 54 Year
  Sex: Female
  Weight: 88.45 kg

DRUGS (1)
  1. SUPREP BOWEL PREP [Suspect]
     Active Substance: MAGNESIUM SULFATE\POTASSIUM SULFATE\SODIUM SULFATE
     Indication: COLONOSCOPY
     Dosage: 2 X 6 OZ. BOTTLE
     Route: 048
     Dates: start: 20191003, end: 20191004

REACTIONS (5)
  - Vomiting projectile [None]
  - Dizziness [None]
  - Diarrhoea [None]
  - Muscle spasms [None]
  - Hypokalaemia [None]

NARRATIVE: CASE EVENT DATE: 20191004
